FAERS Safety Report 7563632-8 (Version None)
Quarter: 2011Q2

REPORT INFORMATION
  Report Type: 
  Country: None (occurrence: None)
  Receive Date: 20110622
  Receipt Date: 20110613
  Transmission Date: 20111010
  Serious: Yes (Hospitalization)
  Sender: FDA-Public Use
  Company Number: PL-BRISTOL-MYERS SQUIBB COMPANY-14946149

PATIENT
  Age: 80 Year
  Sex: Female

DRUGS (7)
  1. FUROSEMIDE [Concomitant]
     Dates: start: 20080104
  2. XARTAN [Concomitant]
     Dates: start: 20080104
  3. KALIPOZ PROLONGATUM [Concomitant]
  4. PLACEBO [Suspect]
     Indication: THROMBOSIS PROPHYLAXIS
     Dosage: WITH APIXABAN AND WARFARIN SODIUM
     Route: 048
     Dates: start: 20090619, end: 20091218
  5. VILPIN [Concomitant]
  6. WARFARIN SODIUM [Suspect]
     Indication: THROMBOSIS PROPHYLAXIS
     Route: 048
     Dates: start: 20090619, end: 20091218
  7. KALIPOZ [Concomitant]
     Dates: start: 20080104

REACTIONS (1)
  - GASTRITIS EROSIVE [None]
